FAERS Safety Report 18270927 (Version 1)
Quarter: 2020Q3

REPORT INFORMATION
  Report Type: Report from Study
  Country: GB (occurrence: GB)
  Receive Date: 20200915
  Receipt Date: 20200915
  Transmission Date: 20201103
  Serious: Yes (Hospitalization)
  Sender: FDA-Public Use
  Company Number: NVSC2020GB083391

PATIENT
  Sex: Female

DRUGS (1)
  1. OMNITROPE [Suspect]
     Active Substance: SOMATROPIN
     Indication: GROWTH HORMONE DEFICIENCY
     Dosage: 0.2 MG, QD
     Route: 058
     Dates: start: 20170629

REACTIONS (6)
  - Malaise [Recovering/Resolving]
  - Anxiety [Unknown]
  - Depression [Unknown]
  - Product dose omission issue [Unknown]
  - Fall [Unknown]
  - Vertigo [Unknown]
